FAERS Safety Report 7551668-2 (Version None)
Quarter: 2011Q2

REPORT INFORMATION
  Report Type: 
  Country: None (occurrence: None)
  Receive Date: 20110616
  Receipt Date: 20110609
  Transmission Date: 20111010
  Serious: Yes (Other)
  Sender: FDA-Public Use
  Company Number: HR-BAXTER-2011BH018977

PATIENT
  Age: 46 Year
  Sex: Female

DRUGS (1)
  1. GAMMAGARD LIQUID [Suspect]
     Indication: IMMUNODEFICIENCY
     Route: 042
     Dates: start: 20110429, end: 20110429

REACTIONS (4)
  - DYSPNOEA [None]
  - THROAT TIGHTNESS [None]
  - NAUSEA [None]
  - CHEST DISCOMFORT [None]
